FAERS Safety Report 16791084 (Version 1)
Quarter: 2019Q3

REPORT INFORMATION
  Report Type: Spontaneous
  Country: DE (occurrence: DE)
  Receive Date: 20190910
  Receipt Date: 20190910
  Transmission Date: 20191005
  Serious: Yes (Hospitalization, Other)
  Sender: FDA-Public Use
  Company Number: DE-MYLANLABS-2019M1083867

PATIENT
  Age: 19 Year
  Sex: Male

DRUGS (5)
  1. TRANXILIUM [Concomitant]
     Active Substance: CLORAZEPATE DIPOTASSIUM
     Dosage: 50 MILLIGRAM, QD
     Dates: start: 20000304, end: 20000327
  2. CLOZAPINE. [Suspect]
     Active Substance: CLOZAPINE
     Dosage: 150 MILLIGRAM, QD
     Dates: start: 20000327
  3. CLOZAPINE. [Suspect]
     Active Substance: CLOZAPINE
     Indication: PRODUCT USED FOR UNKNOWN INDICATION
     Dosage: 12.5 MILLIGRAM, QD
     Dates: start: 20000321
  4. IMPROMEN                           /00568801/ [Concomitant]
     Active Substance: BROMPERIDOL
     Dosage: 20MG-5MG
     Dates: start: 20000319, end: 20000327
  5. CLOZAPINE. [Suspect]
     Active Substance: CLOZAPINE
     Dosage: 175 MILLIGRAM, QD
     Dates: start: 20000329, end: 20000412

REACTIONS (3)
  - Neutropenia [Recovering/Resolving]
  - Dermatitis acneiform [Recovering/Resolving]
  - Skin exfoliation [Recovering/Resolving]

NARRATIVE: CASE EVENT DATE: 20000327
